FAERS Safety Report 8533617-3 (Version None)
Quarter: 2012Q3

REPORT INFORMATION
  Report Type: 
  Country: None (occurrence: None)
  Receive Date: 20120724
  Receipt Date: 20120710
  Transmission Date: 20120928
  Serious: Yes (Hospitalization, Congenital Anomaly, Other)
  Sender: FDA-Public Use
  Company Number: DE-MYLANLABS-2012S1013938

PATIENT
  Age: 0 Year
  Sex: Female
  Weight: 2.5 kg

DRUGS (1)
  1. PAROXETINE HCL [Suspect]
     Dosage: 20 [MG/D ]/ EVERY SECOND DAY
     Route: 064
     Dates: start: 20110420, end: 20120105

REACTIONS (5)
  - SMALL FOR DATES BABY [None]
  - ATRIAL SEPTAL DEFECT [None]
  - HYPERBILIRUBINAEMIA NEONATAL [None]
  - MATERNAL EXPOSURE DURING PREGNANCY [None]
  - BRADYCARDIA NEONATAL [None]
